FAERS Safety Report 8346544-1 (Version None)
Quarter: 2012Q2

REPORT INFORMATION
  Report Type: 
  Country: None (occurrence: None)
  Receive Date: 20120509
  Receipt Date: 20120504
  Transmission Date: 20120825
  Serious: No
  Sender: FDA-Public Use
  Company Number: US-PFIZER INC-2012111048

PATIENT
  Sex: Male
  Weight: 56.7 kg

DRUGS (2)
  1. GENOTROPIN [Suspect]
     Dosage: 1.8 MG, 1X/DAY
     Route: 058
  2. VITAMIN C [Concomitant]
     Dosage: 500 MG, UNK

REACTIONS (1)
  - INJECTION SITE PAIN [None]
